FAERS Safety Report 7260200-2 (Version None)
Quarter: 2011Q1

REPORT INFORMATION
  Report Type: 
  Country: None (occurrence: None)
  Receive Date: 20110130
  Receipt Date: 20101007
  Transmission Date: 20110831
  Serious: No
  Sender: FDA-Public Use
  Company Number: US-ABBOTT-10P-163-0676884-00

PATIENT
  Age: 56 Year
  Sex: Female

DRUGS (6)
  1. TRIAMTERENE AND HYDROCHLOROTHIAZIDE [Concomitant]
     Indication: PRODUCT USED FOR UNKNOWN INDICATION
     Dosage: 37.5-25 MG DAILY
     Route: 048
  2. PRAVASTATIN [Concomitant]
     Indication: PRODUCT USED FOR UNKNOWN INDICATION
     Route: 048
  3. NEXIUM [Concomitant]
     Indication: PRODUCT USED FOR UNKNOWN INDICATION
     Dosage: DAILY
     Route: 048
  4. HUMIRA [Suspect]
     Indication: PSORIASIS
     Dosage: (2) 40 MG INJECTION
     Dates: start: 20100927
  5. HUMIRA [Suspect]
  6. MICARDIS [Concomitant]
     Indication: PRODUCT USED FOR UNKNOWN INDICATION
     Route: 048

REACTIONS (1)
  - OEDEMA PERIPHERAL [None]
